FAERS Safety Report 4271847-X (Version None)
Quarter: 2004Q1

REPORT INFORMATION
  Report Type: 
  Country: None (occurrence: None)
  Receive Date: 20040113
  Receipt Date: 20030509
  Transmission Date: 20041129
  Serious: Yes (Death)
  Sender: FDA-Public Use
  Company Number: AU-JNJFOC-20030906103

PATIENT

DRUGS (2)
  1. CLADRIBINE [Suspect]
     Indication: CHRONIC LYMPHOCYTIC LEUKAEMIA
  2. CHEMOTHERAPY ANTINEOPLASTIC AGENTS [Concomitant]

REACTIONS (2)
  - CARDIAC FAILURE CONGESTIVE [None]
  - DISEASE PROGRESSION [None]
